FAERS Safety Report 6964512 (Version 9)
Quarter: 2013Q4

REPORT INFORMATION
  Report Type: Report from Study
  Country: JP (occurrence: JP)
  Receive Date: 20090409
  Receipt Date: 20131011
  Transmission Date: 20140711
  Serious: Yes (Death, Life-Threatening, Other)
  Sender: FDA-Public Use
  Company Number: JP-BRISTOL-MYERS SQUIBB COMPANY-14575484

PATIENT
  Age: 54 Year
  Sex: Male

DRUGS (14)
  1. SPRYCEL [Suspect]
     Indication: CHRONIC MYELOID LEUKAEMIA
     Route: 048
     Dates: start: 20090330, end: 20090401
  2. AMBISOME [Suspect]
     Dosage: INITIATED ON 30MAR09?INJ
     Route: 042
     Dates: start: 20090330, end: 20090401
  3. VINDESINE SULFATE [Concomitant]
     Indication: CHRONIC MYELOID LEUKAEMIA
     Dosage: FORM:INJ?23JAN-11FEB09,1MG:18MAR-18MAR09.
     Route: 042
     Dates: start: 20090318, end: 20090318
  4. PREDNISOLONE [Concomitant]
     Dosage: TABS:29MAR09-01APR09?INV:02APR09-03APR09
     Route: 048
     Dates: start: 20090329, end: 20090403
  5. OMEPRAZOLE [Concomitant]
     Dosage: INJ
     Route: 042
     Dates: start: 20080331, end: 20090405
  6. IMATINIB MESILATE [Concomitant]
     Indication: CHRONIC MYELOID LEUKAEMIA
     Dosage: 400 - 800 MG
     Route: 048
     Dates: start: 20080514, end: 20090329
  7. VINCRISTINE SULFATE [Concomitant]
     Indication: CHRONIC MYELOID LEUKAEMIA
     Route: 042
     Dates: start: 20090123, end: 20090211
  8. ITRACONAZOLE [Concomitant]
     Dosage: FORM:TABS
     Route: 048
     Dates: start: 20090218, end: 20090405
  9. DINOPROST [Concomitant]
     Dosage: INJ
     Route: 042
     Dates: start: 20090301, end: 20090405
  10. MICAFUNGIN SODIUM [Concomitant]
     Dosage: INJ
     Route: 042
     Dates: start: 20090331, end: 20090404
  11. DOBUTAMINE HCL [Concomitant]
     Dosage: 1 DOSAGE FORM = 10 GAMMA?INJ
     Route: 042
     Dates: start: 20090402, end: 20090404
  12. TRANEXAMIC ACID [Concomitant]
     Dosage: INJ
     Route: 042
     Dates: start: 20090401, end: 20090401
  13. ZOPICLONE [Concomitant]
     Dosage: 1 DOSAGE FORM = 10 GAMMA?INJ
     Route: 042
     Dates: start: 20090402, end: 20090404
  14. MAXIPIME FOR INJ [Concomitant]
     Route: 042
     Dates: start: 20090331, end: 20090403

REACTIONS (8)
  - Multi-organ failure [Fatal]
  - Acute pulmonary oedema [Fatal]
  - Gastrointestinal haemorrhage [Fatal]
  - Shock haemorrhagic [Fatal]
  - Renal failure [Fatal]
  - Generalised oedema [Recovered/Resolved]
  - Muscular weakness [Not Recovered/Not Resolved]
  - Blood creatine phosphokinase increased [Not Recovered/Not Resolved]
